FAERS Safety Report 9669185 (Version 1)
Quarter: 2013Q4

REPORT INFORMATION
  Report Type: Spontaneous
  Country: US (occurrence: None)
  Receive Date: 20131104
  Receipt Date: 20131104
  Transmission Date: 20140711
  Serious: No
  Sender: FDA-Public Use
  Company Number: None

PATIENT
  Age: 78 Year
  Sex: Female
  Weight: 53.98 kg

DRUGS (1)
  1. ALBUTEROL SULFATE [Suspect]
     Indication: CHRONIC OBSTRUCTIVE PULMONARY DISEASE
     Dosage: ONE VIAL, FOUR TIMES DAILY, INHALATION
     Route: 055
     Dates: start: 20131010, end: 20131012

REACTIONS (1)
  - Dyspnoea [None]
